FAERS Safety Report 8380030-8 (Version None)
Quarter: 2012Q2

REPORT INFORMATION
  Report Type: 
  Country: None (occurrence: None)
  Receive Date: 20120523
  Receipt Date: 20120515
  Transmission Date: 20120825
  Serious: Yes (Hospitalization)
  Sender: FDA-Public Use
  Company Number: US-EISAI INC-E7272-00129-CLI-US

PATIENT
  Sex: Female
  Weight: 84 kg

DRUGS (2)
  1. ONTAK [Suspect]
     Dosage: UNKNOWN
     Route: 041
  2. ONTAK [Suspect]
     Route: 041
     Dates: start: 20120326, end: 20120330

REACTIONS (2)
  - DEEP VEIN THROMBOSIS [None]
  - GENERALISED OEDEMA [None]
